FAERS Safety Report 17353647 (Version 1)
Quarter: 2020Q1

REPORT INFORMATION
  Report Type: Spontaneous
  Country: ES (occurrence: ES)
  Receive Date: 20200131
  Receipt Date: 20200131
  Transmission Date: 20200409
  Serious: Yes (Other)
  Sender: FDA-Public Use
  Company Number: ES-AUROBINDO-AUR-APL-2020-004949

PATIENT
  Age: 60 Year
  Sex: Female
  Weight: 107 kg

DRUGS (14)
  1. VINCRISTINE [Suspect]
     Active Substance: VINCRISTINE
     Indication: B-CELL SMALL LYMPHOCYTIC LYMPHOMA
     Dosage: UNK
     Route: 065
     Dates: start: 201310
  2. MELPHALAN. [Suspect]
     Active Substance: MELPHALAN
     Indication: DIFFUSE LARGE B-CELL LYMPHOMA
     Dosage: 60 MILLIGRAM
     Route: 042
     Dates: start: 20150415
  3. PREDNISONE. [Suspect]
     Active Substance: PREDNISONE
     Indication: B-CELL SMALL LYMPHOCYTIC LYMPHOMA
     Dosage: UNK
     Route: 065
     Dates: start: 201310
  4. RITUXIMAB. [Suspect]
     Active Substance: RITUXIMAB
     Indication: DIFFUSE LARGE B-CELL LYMPHOMA
     Dosage: 780 MILLIGRAM
     Route: 042
     Dates: start: 20150316
  5. DOXORUBICIN [Suspect]
     Active Substance: DOXORUBICIN
     Indication: B-CELL SMALL LYMPHOCYTIC LYMPHOMA
     Dosage: UNK
     Route: 065
     Dates: start: 201310
  6. CYTARABINE. [Suspect]
     Active Substance: CYTARABINE
     Indication: PRODUCT USED FOR UNKNOWN INDICATION
     Dosage: 200 MILLIGRAM
     Route: 042
     Dates: start: 20150318
  7. CISPLATIN. [Suspect]
     Active Substance: CISPLATIN
     Indication: DIFFUSE LARGE B-CELL LYMPHOMA
     Dosage: 200 MILLIGRAM
     Route: 065
     Dates: start: 20150317
  8. ETOPOSIDE. [Suspect]
     Active Substance: ETOPOSIDE
     Indication: DIFFUSE LARGE B-CELL LYMPHOMA
     Dosage: 150 MILLIGRAM
     Route: 042
     Dates: start: 20150411
  9. RITUXIMAB. [Suspect]
     Active Substance: RITUXIMAB
     Indication: B-CELL SMALL LYMPHOCYTIC LYMPHOMA
     Dosage: UNK
     Route: 042
     Dates: start: 201310
  10. RITUXIMAB. [Suspect]
     Active Substance: RITUXIMAB
     Dosage: 780 MILLIGRAM
     Route: 042
     Dates: start: 20150409
  11. CYCLOPHOSPHAMIDE. [Suspect]
     Active Substance: CYCLOPHOSPHAMIDE
     Indication: B-CELL SMALL LYMPHOCYTIC LYMPHOMA
     Dosage: UNK
     Route: 065
     Dates: start: 201310
  12. CYTARABINE. [Suspect]
     Active Substance: CYTARABINE
     Dosage: 4000 MILLIGRAM
     Route: 042
     Dates: start: 20150318
  13. CARMUSTINE. [Suspect]
     Active Substance: CARMUSTINE
     Indication: DIFFUSE LARGE B-CELL LYMPHOMA
     Dosage: 120 MILLIGRAM
     Route: 065
  14. DEXAMETHASONE. [Suspect]
     Active Substance: DEXAMETHASONE
     Indication: DIFFUSE LARGE B-CELL LYMPHOMA
     Dosage: 20 MILLIGRAM
     Route: 065
     Dates: start: 20150316

REACTIONS (7)
  - Bacteraemia [Unknown]
  - Febrile neutropenia [Unknown]
  - Urinary tract infection [Unknown]
  - Nephropathy toxic [Unknown]
  - Haematotoxicity [Unknown]
  - Mucosal inflammation [Unknown]
  - Neuropathy peripheral [Unknown]
